FAERS Safety Report 17394019 (Version 1)
Quarter: 2020Q1

REPORT INFORMATION
  Report Type: Spontaneous
  Country: US (occurrence: US)
  Receive Date: 20200210
  Receipt Date: 20200210
  Transmission Date: 20200409
  Serious: No
  Sender: FDA-Public Use
  Company Number: US-CELGENEUS-USA-20191201674

PATIENT
  Age: 65 Year
  Sex: Male

DRUGS (10)
  1. POMALYST [Suspect]
     Active Substance: POMALIDOMIDE
     Dosage: 5-3 MG
     Route: 048
     Dates: start: 201603
  2. POMALYST [Suspect]
     Active Substance: POMALIDOMIDE
     Dosage: 2-3 MILLIGRAM
     Route: 048
     Dates: start: 201907
  3. POMALYST [Suspect]
     Active Substance: POMALIDOMIDE
     Dosage: 3 MILLIGRAM
     Route: 048
     Dates: start: 20191108
  4. POMALYST [Suspect]
     Active Substance: POMALIDOMIDE
     Dosage: 5-3 MILLIGRAM
     Route: 048
     Dates: start: 201504
  5. POMALYST [Suspect]
     Active Substance: POMALIDOMIDE
     Dosage: 3-5 MILLIGRAM
     Route: 048
     Dates: start: 201811
  6. POMALYST [Suspect]
     Active Substance: POMALIDOMIDE
     Indication: PLASMA CELL MYELOMA
     Dosage: 3 MILLIGRAM
     Route: 048
     Dates: start: 201306
  7. POMALYST [Suspect]
     Active Substance: POMALIDOMIDE
     Dosage: 2-3 MILLIGRAM
     Route: 048
     Dates: start: 201307
  8. POMALYST [Suspect]
     Active Substance: POMALIDOMIDE
     Dosage: 3-2 MILLIGRAM
     Route: 048
     Dates: start: 201509
  9. POMALYST [Suspect]
     Active Substance: POMALIDOMIDE
     Dosage: 3-5 MILLIGRAM
     Route: 048
     Dates: start: 201805
  10. POMALYST [Suspect]
     Active Substance: POMALIDOMIDE
     Dosage: 2-5 MILLIGRAM
     Route: 048
     Dates: start: 201807

REACTIONS (3)
  - Neuralgia [Not Recovered/Not Resolved]
  - Neuropathy peripheral [Not Recovered/Not Resolved]
  - Fatigue [Not Recovered/Not Resolved]

NARRATIVE: CASE EVENT DATE: 20191203
